FAERS Safety Report 4977868-3 (Version None)
Quarter: 2006Q2

REPORT INFORMATION
  Report Type: 
  Country: None (occurrence: None)
  Receive Date: 20060420
  Receipt Date: 20060410
  Transmission Date: 20061013
  Serious: Yes (Life-Threatening, Hospitalization, Disabling)
  Sender: FDA-Public Use
  Company Number: NL-GLAXOSMITHKLINE-B0420721A

PATIENT
  Age: 39 Year
  Sex: Male
  Weight: 75 kg

DRUGS (2)
  1. PAROXETINE HYDROCHLORIDE [Suspect]
     Indication: DRUG USE FOR UNKNOWN INDICATION
     Dosage: 20MG TWICE PER DAY
     Route: 065
     Dates: start: 20030424, end: 20030510
  2. ZYPREXA [Concomitant]
     Dosage: 10MG PER DAY
     Dates: start: 20030510

REACTIONS (4)
  - CREATINE PHOSPHOKINASE DECREASED [None]
  - DIFFICULTY IN WALKING [None]
  - PAIN [None]
  - RHABDOMYOLYSIS [None]
